FAERS Safety Report 14412741 (Version 1)
Quarter: 2018Q1

REPORT INFORMATION
  Report Type: Spontaneous
  Country: US (occurrence: US)
  Receive Date: 20180119
  Receipt Date: 20180119
  Transmission Date: 20180509
  Serious: Yes (Hospitalization)
  Sender: FDA-Public Use
  Company Number: None

PATIENT
  Age: 71 Year
  Sex: Male
  Weight: 129 kg

DRUGS (11)
  1. BUMEX [Concomitant]
     Active Substance: BUMETANIDE
  2. ASA [Concomitant]
     Active Substance: ASPIRIN
  3. CELEXA [Concomitant]
     Active Substance: CITALOPRAM HYDROBROMIDE
  4. OXYCODONE [Concomitant]
     Active Substance: OXYCODONE
  5. PLAVIX [Concomitant]
     Active Substance: CLOPIDOGREL BISULFATE
  6. K-DUR [Suspect]
     Active Substance: POTASSIUM CHLORIDE
     Indication: CORONARY ARTERY DISEASE
     Route: 048
  7. HUMULIN NOS [Concomitant]
     Active Substance: INSULIN HUMAN
  8. ENTRESTO [Suspect]
     Active Substance: SACUBITRIL\VALSARTAN
     Indication: CORONARY ARTERY DISEASE
     Dosage: 1 TABLET, (24-26 MG) BID PO
     Route: 048
  9. LYRICA [Concomitant]
     Active Substance: PREGABALIN
  10. LIPITOR [Concomitant]
     Active Substance: ATORVASTATIN CALCIUM
  11. TOPROL CL [Concomitant]

REACTIONS (2)
  - Acute kidney injury [None]
  - Hyperkalaemia [None]

NARRATIVE: CASE EVENT DATE: 20170821
